FAERS Safety Report 7842896 (Version 3)
Quarter: 2012Q4

REPORT INFORMATION
  Report Type: 
  Country: US (occurrence: US)
  Receive Date: 20110307
  Receipt Date: 20120913
  Transmission Date: 20130627
  Serious: Yes (Hospitalization)
  Sender: FDA-Public Use
  Company Number: US-BAYER-2011-020039

PATIENT
  Age: 30 Year
  Sex: Female
  Weight: 90.7 kg

DRUGS (5)
  1. YAZ [Suspect]
     Indication: CONTRACEPTION
     Dosage: UNK
     Route: 048
     Dates: start: 2006, end: 200901
  2. YAZ [Suspect]
     Indication: DYSMENORRHOEA
  3. OCELLA [Suspect]
     Indication: CONTRACEPTION
     Dosage: UNK
     Dates: start: 200901, end: 200902
  4. OCELLA [Suspect]
     Indication: DYSMENORRHOEA
  5. PROMETRIUM [Concomitant]
     Dosage: UNK
     Dates: start: 20090211, end: 20101214

REACTIONS (5)
  - Intracranial venous sinus thrombosis [None]
  - Transverse sinus thrombosis [None]
  - Injury [None]
  - Hemiparesis [None]
  - Cerebral artery thrombosis [None]
